FAERS Safety Report 24881943 (Version 1)
Quarter: 2025Q1

REPORT INFORMATION
  Report Type: Spontaneous
  Country: FR (occurrence: FR)
  Receive Date: 20250124
  Receipt Date: 20250124
  Transmission Date: 20250409
  Serious: Yes (Hospitalization)
  Sender: ORGANON
  Company Number: None

PATIENT
  Age: 69 Year
  Sex: Male
  Weight: 94.4 kg

DRUGS (9)
  1. DIPROSONE [Suspect]
     Active Substance: BETAMETHASONE DIPROPIONATE
     Indication: Skin fissures
     Route: 003
     Dates: start: 20241204, end: 20241219
  2. TERBINAFINE [Suspect]
     Active Substance: TERBINAFINE
     Indication: Skin fissures
     Route: 048
     Dates: start: 20241204, end: 20241206
  3. FUSIDATE SODIUM [Suspect]
     Active Substance: FUSIDATE SODIUM
     Indication: Skin fissures
     Route: 048
     Dates: start: 20241204, end: 20241219
  4. MUPIROCIN [Suspect]
     Active Substance: MUPIROCIN
     Indication: Skin fissures
     Route: 003
     Dates: start: 20241204, end: 20241219
  5. ROSUVASTATIN [Concomitant]
     Active Substance: ROSUVASTATIN
  6. FEBUXOSTAT [Concomitant]
     Active Substance: FEBUXOSTAT
  7. HYDROCHLOROTHIAZIDE\IRBESARTAN [Concomitant]
     Active Substance: HYDROCHLOROTHIAZIDE\IRBESARTAN
  8. METFORMIN HYDROCHLORIDE [Concomitant]
     Active Substance: METFORMIN HYDROCHLORIDE
  9. SITAGLIPTIN [Concomitant]
     Active Substance: SITAGLIPTIN

REACTIONS (1)
  - Vascular purpura [Not Recovered/Not Resolved]

NARRATIVE: CASE EVENT DATE: 20241206
